FAERS Safety Report 9548688 (Version 1)
Quarter: 2013Q3

REPORT INFORMATION
  Report Type: Spontaneous
  Country: US (occurrence: None)
  Receive Date: 20130919
  Receipt Date: 20130919
  Transmission Date: 20140515
  Serious: Yes (Hospitalization)
  Sender: FDA-Public Use
  Company Number: 2013-US-000196

PATIENT
  Age: 47 Year
  Sex: Female

DRUGS (2)
  1. CLOZAPINE [Suspect]
     Indication: SCHIZOPHRENIA
     Route: 048
  2. CITALOPRAM [Concomitant]

REACTIONS (9)
  - Serotonin syndrome [None]
  - Cholinergic syndrome [None]
  - Gastroenteritis viral [None]
  - Unresponsive to stimuli [None]
  - Clonus [None]
  - Agitation [None]
  - Salivary hypersecretion [None]
  - Muscle spasticity [None]
  - Electroencephalogram abnormal [None]
